FAERS Safety Report 9073622 (Version 1)
Quarter: 2013Q1

REPORT INFORMATION
  Report Type: Report from Study
  Country: US (occurrence: US)
  Receive Date: 20130128
  Receipt Date: 20130128
  Transmission Date: 20140127
  Serious: Yes (Hospitalization)
  Sender: FDA-Public Use
  Company Number: US-ABBOTT-12P-163-0916697-00

PATIENT
  Age: 41 Year
  Sex: Female

DRUGS (5)
  1. HUMIRA 40 MG/0.8 ML PEN [Suspect]
     Indication: RHEUMATOID ARTHRITIS
     Dates: start: 20120120
  2. KEPPRA [Concomitant]
     Indication: CONVULSION
  3. METFORMIN [Concomitant]
     Indication: DIABETES MELLITUS
  4. HYDROCODONE [Concomitant]
     Indication: PAIN
     Dosage: PRN
  5. PREDNISONE [Concomitant]
     Indication: PRODUCT USED FOR UNKNOWN INDICATION

REACTIONS (2)
  - Pneumonia [Recovering/Resolving]
  - Asthma [Recovering/Resolving]
